FAERS Safety Report 8450949-8 (Version None)
Quarter: 2012Q2

REPORT INFORMATION
  Report Type: 
  Country: None (occurrence: None)
  Receive Date: 20120620
  Receipt Date: 20120615
  Transmission Date: 20120825
  Serious: Yes (Death)
  Sender: FDA-Public Use
  Company Number: US-ROCHE-1055147

PATIENT
  Sex: Male
  Weight: 78.315 kg

DRUGS (4)
  1. DEXAMETHASONE [Concomitant]
     Route: 048
  2. LOVENOX [Concomitant]
     Indication: DEEP VEIN THROMBOSIS
  3. HYDROCODONE [Concomitant]
     Route: 048
  4. ZELBORAF [Suspect]
     Indication: MALIGNANT MELANOMA
     Route: 048
     Dates: start: 20111107, end: 20120228

REACTIONS (1)
  - GENE MUTATION [None]
